FAERS Safety Report 17842395 (Version 1)
Quarter: 2020Q2

REPORT INFORMATION
  Report Type: Spontaneous
  Country: US (occurrence: US)
  Receive Date: 20200529
  Receipt Date: 20200529
  Transmission Date: 20200714
  Serious: No
  Sender: FDA-Public Use
  Company Number: US-009507513-2005USA009036

PATIENT
  Age: 53 Year
  Sex: Female

DRUGS (7)
  1. DEXAMETHASONE. [Concomitant]
     Active Substance: DEXAMETHASONE
  2. REMERON [Suspect]
     Active Substance: MIRTAZAPINE
     Indication: PROPHYLAXIS OF NAUSEA AND VOMITING
     Dosage: 7.5 MILLIGRAM, HS
     Route: 048
  3. CARBOPLATIN. [Concomitant]
     Active Substance: CARBOPLATIN
     Indication: OVARIAN CANCER RECURRENT
     Dosage: 4.5 AUC, EVERY 21 DAYS
  4. PACLITAXEL. [Concomitant]
     Active Substance: PACLITAXEL
     Indication: OVARIAN CANCER RECURRENT
     Dosage: 175 MILLIGRAM/SQ. METER, EVERY 21 DAYS
  5. EMEND [Concomitant]
     Active Substance: APREPITANT
  6. REMERON [Suspect]
     Active Substance: MIRTAZAPINE
     Dosage: 15 MILLIGRAM, HS
     Route: 048
  7. ONDANSETRON [Concomitant]
     Active Substance: ONDANSETRON

REACTIONS (3)
  - Prophylaxis of nausea and vomiting [Unknown]
  - Somnolence [Recovered/Resolved with Sequelae]
  - Drug effective for unapproved indication [Unknown]
